FAERS Safety Report 10710296 (Version 1)
Quarter: 2015Q1

REPORT INFORMATION
  Report Type: Spontaneous
  Country: US (occurrence: None)
  Receive Date: 20150112
  Receipt Date: 20150112
  Transmission Date: 20150721
  Serious: Yes (Other)
  Sender: FDA-Public Use
  Company Number: US-001461

PATIENT
  Age: 67 Year
  Sex: Female

DRUGS (5)
  1. PROTONIX [Concomitant]
     Active Substance: PANTOPRAZOLE SODIUM
  2. SOLUTIONS FOR PARENTERAL NUTRITION [Concomitant]
     Active Substance: AMINO ACIDS\DEXTROSE\ELECTROLYTES NOS
  3. VITAMIN D/ 00107901/ [Concomitant]
  4. NEO ACTIVE VITAMIN B12 [Concomitant]
  5. GATTEX [Suspect]
     Active Substance: TEDUGLUTIDE\WATER
     Indication: SHORT-BOWEL SYNDROME
     Route: 058
     Dates: start: 201312, end: 201412

REACTIONS (4)
  - Chromaturia [None]
  - Small intestinal obstruction [None]
  - Condition aggravated [None]
  - Urine odour abnormal [None]

NARRATIVE: CASE EVENT DATE: 201411
